FAERS Safety Report 5087300-X (Version None)
Quarter: 2006Q3

REPORT INFORMATION
  Report Type: 
  Country: None (occurrence: None)
  Receive Date: 20060821
  Receipt Date: 20060807
  Transmission Date: 20061208
  Serious: Yes (Other)
  Sender: FDA-Public Use
  Company Number: DE200607004700

PATIENT
  Age: 58 Year
  Sex: Female

DRUGS (6)
  1. ALIMTA [Suspect]
     Indication: SARCOMA UTERUS
  2. KEVATRIL (GRANISETRON HYDROCHLORIDE) [Concomitant]
  3. CYANOCOBALAMIN [Concomitant]
  4. FOLIC ACID [Concomitant]
  5. ANTIBIOTICS [Concomitant]
  6. LEVOFLOXACIN [Concomitant]

REACTIONS (1)
  - NEPHRITIS INTERSTITIAL [None]
